FAERS Safety Report 18023811 (Version 1)
Quarter: 2020Q3

REPORT INFORMATION
  Report Type: Spontaneous
  Country: CA (occurrence: CA)
  Receive Date: 20200715
  Receipt Date: 20200715
  Transmission Date: 20201103
  Serious: Yes (Hospitalization, Other)
  Sender: FDA-Public Use
  Company Number: CA-SAMSUNG BIOEPIS-SB-2020-22154

PATIENT
  Age: 60 Year
  Sex: Female

DRUGS (2)
  1. ETANERCEPT [Suspect]
     Active Substance: ETANERCEPT
     Indication: ANKYLOSING SPONDYLITIS
     Route: 058
  2. ETANERCEPT [Suspect]
     Active Substance: ETANERCEPT
     Route: 058

REACTIONS (11)
  - Injection site pain [Unknown]
  - Headache [Unknown]
  - Ankylosing spondylitis [Unknown]
  - Therapeutic response decreased [Unknown]
  - Inflammation [Unknown]
  - Infection [Unknown]
  - Mass [Unknown]
  - Skin discolouration [Unknown]
  - Fatigue [Unknown]
  - Vaginal discharge [Unknown]
  - Somnolence [Unknown]
